FAERS Safety Report 7303328-0 (Version None)
Quarter: 2011Q1

REPORT INFORMATION
  Report Type: 
  Country: None (occurrence: None)
  Receive Date: 20110221
  Receipt Date: 20110210
  Transmission Date: 20110831
  Serious: Yes (Other)
  Sender: FDA-Public Use
  Company Number: FR-BRISTOL-MYERS SQUIBB COMPANY-15547789

PATIENT
  Age: 3 Decade
  Sex: Male

DRUGS (3)
  1. TRUVADA [Suspect]
     Dosage: STARTED THREE YEARS AGO
  2. NORVIR [Suspect]
     Dosage: STARTED THREE YEARS AGO
  3. REYATAZ [Suspect]
     Dosage: STARTED THREE YEARS AGO

REACTIONS (3)
  - TRANSAMINASES INCREASED [None]
  - BLOOD BILIRUBIN INCREASED [None]
  - HEPATIC STEATOSIS [None]
